FAERS Safety Report 5373173-4 (Version None)
Quarter: 2007Q2

REPORT INFORMATION
  Report Type: 
  Country: None (occurrence: None)
  Receive Date: 20070626
  Receipt Date: 20070614
  Transmission Date: 20071010
  Serious: Yes (Other)
  Sender: FDA-Public Use
  Company Number: 2007BI004806

PATIENT
  Age: 66 Year
  Sex: Female

DRUGS (17)
  1. AVONEX [Suspect]
     Indication: MULTIPLE SCLEROSIS
     Dosage: IM
     Route: 030
     Dates: start: 19990501
  2. GEMFIBROZIL [Concomitant]
  3. TETRACYCLINE [Concomitant]
  4. ATENOLOL [Concomitant]
  5. FEXOFENADINE [Concomitant]
  6. HYDROCHLOROTHIAZIDE [Concomitant]
  7. ASPIRIN [Concomitant]
  8. ADALAT [Concomitant]
  9. OMEPRAZOLE [Concomitant]
  10. METFORMIN [Concomitant]
  11. VITAMIN B-12 [Concomitant]
  12. FOLIC ACID [Concomitant]
  13. ALBUTEROL [Concomitant]
  14. FLONASE [Concomitant]
  15. HYDROCODONE BITARTRATE [Concomitant]
  16. CICLOPIROX [Concomitant]
  17. CALCIUM CHLORIDE [Concomitant]

REACTIONS (1)
  - BASAL CELL CARCINOMA [None]
